APPROVED DRUG PRODUCT: ASCLERA
Active Ingredient: POLIDOCANOL
Strength: 20MG/2ML (10MG/ML)
Dosage Form/Route: SOLUTION;INTRAVENOUS
Application: N021201 | Product #002
Applicant: CHEMISCHE FABRIK KREUSSLER & CO. GMBH
Approved: Mar 30, 2010 | RLD: Yes | RS: Yes | Type: RX